FAERS Safety Report 7296629-6 (Version None)
Quarter: 2011Q1

REPORT INFORMATION
  Report Type: 
  Country: None (occurrence: None)
  Receive Date: 20110216
  Receipt Date: 20110208
  Transmission Date: 20110831
  Serious: Yes (Hospitalization)
  Sender: FDA-Public Use
  Company Number: PHHO2010NL16069

PATIENT
  Sex: Female

DRUGS (9)
  1. NITRAZEPAM [Concomitant]
     Indication: ANXIETY
     Dosage: UNK
  2. ALBUTEROL [Concomitant]
  3. LISINOPRIL [Concomitant]
     Indication: HYPERTENSION
     Dosage: UNK
  4. OMEPRAZOLE [Concomitant]
     Indication: GASTRIC PH DECREASED
     Dosage: UNK
  5. FLUTICASONE PROPIONATE [Concomitant]
  6. SALMETEROL [Concomitant]
  7. LETROZOLE [Suspect]
     Indication: BREAST CANCER
     Dosage: 2.5 MG, QD
     Route: 048
     Dates: start: 20060912
  8. ACENOCOUMAROL [Concomitant]
     Indication: MITRAL VALVE INCOMPETENCE
  9. FLUIMUCIL [Concomitant]

REACTIONS (8)
  - PLEURAL EFFUSION [None]
  - ATRIAL FIBRILLATION [None]
  - CARDIAC FAILURE [None]
  - PNEUMONIA [None]
  - MITRAL VALVE INCOMPETENCE [None]
  - DYSPNOEA [None]
  - CHRONIC OBSTRUCTIVE PULMONARY DISEASE [None]
  - MITRAL VALVE REPLACEMENT [None]
